FAERS Safety Report 8548411-7 (Version None)
Quarter: 2012Q3

REPORT INFORMATION
  Report Type: 
  Country: None (occurrence: None)
  Receive Date: 20120719
  Receipt Date: 20120719
  Transmission Date: 20120928
  Serious: No
  Sender: FDA-Public Use
  Company Number: None

PATIENT
  Age: 79 Year
  Sex: Female
  Weight: 102.0593 kg

DRUGS (2)
  1. PHENERGAN HCL [Suspect]
     Indication: PROPHYLAXIS OF NAUSEA AND VOMITING
     Dosage: 6.25 MG ONCE IV BOLUS
     Route: 040
     Dates: start: 20110103, end: 20110103
  2. DILAUDID [Suspect]
     Indication: PROCEDURAL PAIN
     Dosage: 0.1 MG H6MIN IV
     Route: 042
     Dates: start: 20110103, end: 20110103

REACTIONS (4)
  - OXYGEN SATURATION DECREASED [None]
  - HYPOPNOEA [None]
  - DEPRESSED LEVEL OF CONSCIOUSNESS [None]
  - BLOOD PRESSURE SYSTOLIC INCREASED [None]
